FAERS Safety Report 9999183 (Version 3)
Quarter: 2014Q2

REPORT INFORMATION
  Report Type: Spontaneous
  Country: KR (occurrence: KR)
  Receive Date: 20140312
  Receipt Date: 20140610
  Transmission Date: 20141212
  Serious: Yes (Death)
  Sender: FDA-Public Use
  Company Number: KR-CELGENEUS-286-21880-14024345

PATIENT
  Age: 56 Year
  Sex: Female

DRUGS (4)
  1. REVLIMID [Suspect]
     Indication: PLASMA CELL MYELOMA
     Dosage: 25 MILLIGRAM
     Route: 048
     Dates: start: 20140207, end: 20140214
  2. MORPHINE [Concomitant]
     Indication: PAIN MANAGEMENT
     Route: 041
     Dates: start: 20140114, end: 20140220
  3. DENOGAN [Concomitant]
     Indication: PYREXIA
     Route: 041
     Dates: start: 20140214, end: 20140220
  4. COMBIFLEX LIPID [Concomitant]
     Indication: NUTRITIONAL SUPPLEMENTATION
     Route: 041
     Dates: start: 20140127, end: 20140220

REACTIONS (2)
  - Pneumonia aspiration [Fatal]
  - Plasma cell myeloma [Fatal]
